FAERS Safety Report 19795115 (Version 1)
Quarter: 2021Q3

REPORT INFORMATION
  Report Type: Spontaneous
  Country: US (occurrence: US)
  Receive Date: 20210903
  Receipt Date: 20210903
  Transmission Date: 20211014
  Serious: Yes (Life-Threatening, Hospitalization)
  Sender: FDA-Public Use
  Company Number: None

PATIENT
  Age: 74 Year
  Sex: Female
  Weight: 73 kg

DRUGS (4)
  1. ENOXAPARIN 40 MG SQ Q24H [Concomitant]
     Dates: start: 20210820, end: 20210831
  2. ENOXAPARIN 40 MG SQ Q24H [Concomitant]
     Dates: start: 20210811, end: 20210817
  3. ENOXAPARIN 1 MG/KG SQ Q12H [Concomitant]
     Dates: start: 20210818, end: 20210820
  4. BARICITINIB. [Suspect]
     Active Substance: BARICITINIB
     Indication: COVID-19
     Route: 048
     Dates: start: 20210825, end: 20210903

REACTIONS (3)
  - Upper gastrointestinal haemorrhage [None]
  - Duodenal ulcer [None]
  - Haematemesis [None]

NARRATIVE: CASE EVENT DATE: 20210901
